FAERS Safety Report 6237460-X (Version None)
Quarter: 2009Q2

REPORT INFORMATION
  Report Type: 
  Country: None (occurrence: None)
  Receive Date: 20090619
  Receipt Date: 20090610
  Transmission Date: 20091009
  Serious: Yes (Other)
  Sender: FDA-Public Use
  Company Number: PHHY2009BR22928

PATIENT
  Sex: Male
  Weight: 60 kg

DRUGS (6)
  1. EXELON [Suspect]
     Indication: DEMENTIA ALZHEIMER'S TYPE
     Dosage: 1 DF, QHS
     Route: 062
     Dates: start: 20090301
  2. METFORMIN HCL [Concomitant]
     Indication: DIABETES MELLITUS
     Dosage: 1 TABLET (850 MG) DAILY
     Route: 048
  3. GLIMEPIRIDE [Concomitant]
     Indication: DIABETES MELLITUS
     Dosage: 1 TABLET (5 MG) DAILY
     Route: 048
  4. CLONAZEPAM [Concomitant]
     Indication: DEPRESSION
     Dosage: 58 MG
     Route: 048
  5. BROMAZEPAM [Concomitant]
     Indication: INSOMNIA
     Dosage: 1 TABLET (6 MG) AT NIGHT
     Route: 048
  6. ATENOLOL [Concomitant]
     Indication: HYPERTENSION
     Dosage: 50 MG, BID
     Route: 048

REACTIONS (9)
  - ACTIVITIES OF DAILY LIVING IMPAIRED [None]
  - APPETITE DISORDER [None]
  - DECREASED ACTIVITY [None]
  - DEMENTIA ALZHEIMER'S TYPE [None]
  - DRUG INEFFECTIVE [None]
  - FEELING OF DESPAIR [None]
  - INCORRECT DOSE ADMINISTERED [None]
  - LACK OF SPONTANEOUS SPEECH [None]
  - MEMORY IMPAIRMENT [None]
